FAERS Safety Report 13422463 (Version 1)
Quarter: 2017Q2

REPORT INFORMATION
  Report Type: Spontaneous
  Country: US (occurrence: US)
  Receive Date: 20170409
  Receipt Date: 20170409
  Transmission Date: 20170830
  Serious: No
  Sender: FDA-Public Use
  Company Number: None

PATIENT
  Age: 35 Year
  Sex: Female
  Weight: 51.75 kg

DRUGS (4)
  1. FLUTICASONE PROPIONATE NASAL SPR [Suspect]
     Active Substance: FLUTICASONE PROPIONATE
     Indication: SEASONAL ALLERGY
     Dosage: ?          OTHER STRENGTH:MCG;QUANTITY:1 SPRAY(S);?
     Route: 055
     Dates: start: 20170403, end: 20170408
  2. FLUTICASONE PROPIONATE NASAL SPR [Suspect]
     Active Substance: FLUTICASONE PROPIONATE
     Indication: NASAL CONGESTION
     Dosage: ?          OTHER STRENGTH:MCG;QUANTITY:1 SPRAY(S);?
     Route: 055
     Dates: start: 20170403, end: 20170408
  3. MAGNESIUM SUPPLEMENT [Concomitant]
  4. IRON SUPPLEMENT [Concomitant]
     Active Substance: IRON

REACTIONS (1)
  - Panic attack [None]

NARRATIVE: CASE EVENT DATE: 20170407
